FAERS Safety Report 5326501-X (Version None)
Quarter: 2007Q2

REPORT INFORMATION
  Report Type: 
  Country: None (occurrence: None)
  Receive Date: 20070510
  Receipt Date: 20070424
  Transmission Date: 20071010
  Serious: Yes (Death)
  Sender: FDA-Public Use
  Company Number: DSA_29823_2007

PATIENT
  Sex: Female
  Weight: 80.2867 kg

DRUGS (10)
  1. ATIVAN [Suspect]
  2. TAMIFLU [Suspect]
     Indication: INFLUENZA
  3. VALIUM [Suspect]
  4. METHADONE HCL [Suspect]
  5. SOMATROPIN [Suspect]
  6. NOCTEC [Suspect]
     Indication: INSOMNIA
  7. BENADRYL [Suspect]
  8. KLONOPIN [Suspect]
  9. SOMA [Suspect]
  10. ROBAXIN [Suspect]

REACTIONS (15)
  - AUTOIMMUNE THYROIDITIS [None]
  - CEREBRAL INFARCTION [None]
  - CONFUSIONAL STATE [None]
  - CONTUSION [None]
  - DEHYDRATION [None]
  - DRUG TOXICITY [None]
  - ENTERITIS [None]
  - FALL [None]
  - GASTROENTERITIS VIRAL [None]
  - HEPATOMEGALY [None]
  - MYOCARDIAL FIBROSIS [None]
  - PANNICULITIS [None]
  - PLEURAL ADHESION [None]
  - SUBCUTANEOUS ABSCESS [None]
  - THYROIDITIS CHRONIC [None]
